FAERS Safety Report 5117830-3 (Version None)
Quarter: 2006Q3

REPORT INFORMATION
  Report Type: 
  Country: None (occurrence: None)
  Receive Date: 20060926
  Receipt Date: 20060918
  Transmission Date: 20061208
  Serious: Yes (Other)
  Sender: FDA-Public Use
  Company Number: VISP-NO-0609S-0612

PATIENT
  Sex: Female

DRUGS (8)
  1. VISIPAQUE [Suspect]
     Indication: DRUG USE FOR UNKNOWN INDICATION
     Dosage: 1 TIME PER YEAR FRO 1998 TO 2005, I.V.
     Route: 042
     Dates: start: 19980101, end: 20050101
  2. ACCUPAQUE (IOHEXOL) [Suspect]
     Indication: DRUG USE FOR UNKNOWN INDICATION
     Dosage: 1 TIME PER YEAR FROM 1998 TO 2005, I.V.
     Route: 042
     Dates: start: 19980101, end: 20050101
  3. OXPRENOLOL HYDROCHLORIDE (TRASICOR) [Concomitant]
  4. HYDROCHLOROTHIAZIDE/AMILORIDE HYDROCHLORIDE (COMILORID) [Concomitant]
  5. ALENDRONIC ACID (FOSAMAX) [Concomitant]
  6. COLECALCIFEROL/CALCIUM CARBONATE (CALCIMAGON-D3) [Concomitant]
  7. PRAVASTATIN SODIUM [Concomitant]
  8. OXAZEPAM [Concomitant]

REACTIONS (8)
  - EPITHELIOMA [None]
  - FIBROSIS [None]
  - NODULE ON EXTREMITY [None]
  - RENAL FAILURE [None]
  - SEBACEOUS GLAND DISORDER [None]
  - SKIN LESION [None]
  - SKIN NODULE [None]
  - SKIN ULCER [None]
